FAERS Safety Report 16536735 (Version 1)
Quarter: 2019Q3

REPORT INFORMATION
  Report Type: Spontaneous
  Country: US (occurrence: US)
  Receive Date: 20190706
  Receipt Date: 20190706
  Transmission Date: 20191004
  Serious: No
  Sender: FDA-Public Use
  Company Number: US-TEVA-2019-US-1065925

PATIENT
  Sex: Female

DRUGS (2)
  1. BACLOFEN TABLET IVAX [Suspect]
     Active Substance: BACLOFEN
     Indication: MUSCLE SPASTICITY
     Dosage: 30 MILLIGRAM DAILY;
     Route: 065
     Dates: start: 201905
  2. BACLOFEN TABLET IVAX [Suspect]
     Active Substance: BACLOFEN
     Dosage: 1 TABLET IN THE MORNING, HALF A TABLET IN THE AFTERNOON AND 1 TABLET AT NIGHT
     Route: 065

REACTIONS (7)
  - Muscular weakness [Unknown]
  - Dehydration [Unknown]
  - Dysphagia [Unknown]
  - Gastrointestinal disorder [Unknown]
  - Abdominal discomfort [Unknown]
  - Reaction to excipient [Unknown]
  - Product substitution issue [Unknown]

NARRATIVE: CASE EVENT DATE: 201905
